FAERS Safety Report 6769671-9 (Version None)
Quarter: 2010Q2

REPORT INFORMATION
  Report Type: 
  Country: None (occurrence: None)
  Receive Date: 20100603
  Receipt Date: 20100524
  Transmission Date: 20101027
  Serious: Yes (Disabling)
  Sender: FDA-Public Use
  Company Number: 2010SP028818

PATIENT
  Age: 27 Year
  Sex: Female

DRUGS (2)
  1. DESLORATADINE AND PSEUDOEPHEDRINE SULFATE [Suspect]
     Indication: EAR CONGESTION
     Dosage: ; PO
     Route: 048
     Dates: start: 20100501, end: 20100507
  2. HELIPAK [Concomitant]

REACTIONS (2)
  - TINNITUS [None]
  - VIIITH NERVE LESION [None]
